FAERS Safety Report 24082725 (Version 2)
Quarter: 2024Q3

REPORT INFORMATION
  Report Type: Spontaneous
  Country: CA (occurrence: CA)
  Receive Date: 20240712
  Receipt Date: 20240904
  Transmission Date: 20241017
  Serious: Yes (Hospitalization)
  Sender: PFIZER
  Company Number: CA-PFIZER INC-202300423364

PATIENT
  Age: 58 Year
  Sex: Female
  Weight: 62 kg

DRUGS (2)
  1. RUXIENCE [Suspect]
     Active Substance: RITUXIMAB-PVVR
     Indication: Multiple sclerosis
     Dosage: 1000 MG, EVERY 6 MONTHS REPEAT X 1
     Route: 042
     Dates: start: 20240108
  2. RUXIENCE [Suspect]
     Active Substance: RITUXIMAB-PVVR
     Indication: Encephalitis autoimmune
     Dosage: 1000 MG, EVERY 6 MONTHS (PATIENT HAD 2 DOSES IN HOSPITAL IN ^JUL2024^ AS PER MD)
     Route: 042
     Dates: start: 20240708

REACTIONS (2)
  - Behaviour disorder [Recovered/Resolved]
  - Off label use [Unknown]

NARRATIVE: CASE EVENT DATE: 20240101
